FAERS Safety Report 24970721 (Version 2)
Quarter: 2025Q3

REPORT INFORMATION
  Report Type: Spontaneous
  Country: JP (occurrence: JP)
  Receive Date: 20250214
  Receipt Date: 20250725
  Transmission Date: 20251020
  Serious: Yes (Death, Hospitalization, Other)
  Sender: ELI LILLY AND COMPANY
  Company Number: JP-ELI_LILLY_AND_COMPANY-JP202502004571

PATIENT
  Age: 76 Year
  Sex: Male
  Weight: 68 kg

DRUGS (13)
  1. OLUMIANT [Suspect]
     Active Substance: BARICITINIB
     Indication: Rheumatoid arthritis
     Dosage: 4 MG, DAILY
     Route: 048
     Dates: start: 20230207, end: 20240626
  2. METHOTREXATE [Concomitant]
     Active Substance: METHOTREXATE
     Indication: Rheumatoid arthritis
     Dates: start: 20180424, end: 202501
  3. TELMISARTAN [Concomitant]
     Active Substance: TELMISARTAN
     Indication: Hypertension
     Dosage: 20 MG, DAILY
     Route: 048
     Dates: start: 20191224
  4. ATORVASTATIN [Concomitant]
     Active Substance: ATORVASTATIN
     Indication: Dyslipidaemia
     Dosage: 5 MG, DAILY
     Route: 048
     Dates: start: 20180801
  5. VONOPRAZAN FUMARATE [Concomitant]
     Active Substance: VONOPRAZAN FUMARATE
     Indication: Gastrooesophageal reflux disease
     Dosage: 10 MG, DAILY
     Route: 048
     Dates: start: 20180501
  6. LAC B [BIFIDOBACTERIUM BIFIDUM] [Concomitant]
     Indication: Constipation
     Dosage: 1 DOSAGE FORM, DAILY
     Route: 048
     Dates: start: 20220420
  7. MAGNESIUM OXIDE [Concomitant]
     Active Substance: MAGNESIUM OXIDE
     Indication: Constipation
     Dosage: 1 DOSAGE FORM, DAILY
     Route: 048
     Dates: start: 20220420
  8. MENATETRENONE [Concomitant]
     Active Substance: MENATETRENONE
     Indication: Osteoporosis
     Dosage: 15 MG, TID
     Route: 048
     Dates: start: 20231017
  9. ELDECALCITOL [Concomitant]
     Active Substance: ELDECALCITOL
     Indication: Osteoporosis
     Dosage: 0.25 UG, DAILY
     Route: 048
     Dates: start: 20180501
  10. MINODRONIC ACID [Concomitant]
     Active Substance: MINODRONIC ACID
     Indication: Osteoporosis
     Dosage: 50 MG, MONTHLY (1/M)
     Route: 048
     Dates: start: 20180503
  11. SULFAMETHOXAZOLE\TRIMETHOPRIM [Concomitant]
     Active Substance: SULFAMETHOXAZOLE\TRIMETHOPRIM
     Indication: Primary ciliary dyskinesia
     Dosage: 1 DOSAGE FORM, 3/W
     Route: 048
     Dates: start: 20211013
  12. LOXOPROFEN SODIUM DIHYDRATE [Concomitant]
     Active Substance: LOXOPROFEN SODIUM DIHYDRATE
     Indication: Arthralgia
     Dosage: 100 MG, DAILY
     Route: 062
     Dates: start: 20221220
  13. HEPARINOID [Concomitant]
     Indication: Dry skin
     Route: 062
     Dates: start: 20221019

REACTIONS (8)
  - Lung neoplasm malignant [Fatal]
  - Metastases to liver [Unknown]
  - Metastases to bone [Unknown]
  - Metastases to lymph nodes [Unknown]
  - Tumour necrosis [Unknown]
  - Disseminated intravascular coagulation [Not Recovered/Not Resolved]
  - Lymphangiosis carcinomatosa [Unknown]
  - Anaemia [Recovering/Resolving]

NARRATIVE: CASE EVENT DATE: 20240626
